FAERS Safety Report 4579669-7 (Version None)
Quarter: 2005Q1

REPORT INFORMATION
  Report Type: 
  Country: None (occurrence: None)
  Receive Date: 20050210
  Receipt Date: 20050126
  Transmission Date: 20050727
  Serious: Yes (Other)
  Sender: FDA-Public Use
  Company Number: A-US2005-08732

PATIENT
  Age: 32 Year
  Sex: Female

DRUGS (4)
  1. TRACLEER [Suspect]
     Indication: PULMONARY HYPERTENSION
     Dosage: ORAL
     Route: 048
     Dates: start: 20040501
  2. LASIX [Concomitant]
  3. LEXAPRO [Concomitant]
  4. SEROQUEL [Concomitant]

REACTIONS (1)
  - PANCREATITIS [None]
